FAERS Safety Report 15638570 (Version 1)
Quarter: 2018Q4

REPORT INFORMATION
  Report Type: Spontaneous
  Country: US (occurrence: US)
  Receive Date: 20181120
  Receipt Date: 20181120
  Transmission Date: 20190205
  Serious: No
  Sender: FDA-Public Use
  Company Number: US-JNJFOC-20180204449

PATIENT
  Sex: Female

DRUGS (6)
  1. IMBRUVICA [Suspect]
     Active Substance: IBRUTINIB
     Indication: MANTLE CELL LYMPHOMA
     Route: 048
     Dates: start: 20171206
  2. ECOTRIN [Concomitant]
     Active Substance: ASPIRIN
  3. NORVASC [Concomitant]
     Active Substance: AMLODIPINE BESYLATE
  4. MULTIVITAMINS [Concomitant]
     Active Substance: VITAMINS
  5. CITRACAL [Concomitant]
     Active Substance: CALCIUM CITRATE
  6. CALCIUM [Concomitant]
     Active Substance: CALCIUM

REACTIONS (1)
  - Increased appetite [Unknown]
